FAERS Safety Report 24454743 (Version 2)
Quarter: 2024Q4

REPORT INFORMATION
  Report Type: Spontaneous
  Country: CN (occurrence: CN)
  Receive Date: 20241017
  Receipt Date: 20241018
  Transmission Date: 20250115
  Serious: No
  Sender: ROCHE
  Company Number: CN-ROCHE-3476540

PATIENT
  Age: 61 Year
  Sex: Female

DRUGS (6)
  1. RITUXIMAB [Suspect]
     Active Substance: RITUXIMAB
     Indication: Pemphigoid
     Dosage: 200 MG IVGTT BID AT AN INTERVAL OF 2 WEEKS.
     Route: 042
  2. METHYLPREDNISOLONE [Concomitant]
     Active Substance: METHYLPREDNISOLONE
     Dosage: 12-20 MG
  3. METHOTREXATE [Concomitant]
     Active Substance: METHOTREXATE
  4. ABROCITINIB [Concomitant]
     Active Substance: ABROCITINIB
     Route: 048
  5. ABROCITINIB [Concomitant]
     Active Substance: ABROCITINIB
     Route: 048
  6. DIPROSPAN [Concomitant]
     Active Substance: BETAMETHASONE DIPROPIONATE\BETAMETHASONE SODIUM PHOSPHATE

REACTIONS (2)
  - Off label use [Unknown]
  - No adverse event [Unknown]
